FAERS Safety Report 6960074-0 (Version None)
Quarter: 2010Q3

REPORT INFORMATION
  Report Type: 
  Country: None (occurrence: None)
  Receive Date: 20100901
  Receipt Date: 20100823
  Transmission Date: 20110219
  Serious: Yes (Other)
  Sender: FDA-Public Use
  Company Number: US-GENZYME-THYM-1001794

PATIENT
  Sex: Male

DRUGS (3)
  1. THYMOGLOBULIN [Suspect]
     Indication: PROPHYLAXIS AGAINST TRANSPLANT REJECTION
     Dosage: 1.5 MG/KG, ONCE
     Route: 042
  2. THYMOGLOBULIN [Suspect]
     Dosage: UNK
     Route: 042
  3. CELLCEPT [Concomitant]
     Indication: IMMUNOSUPPRESSION

REACTIONS (4)
  - CONFUSIONAL STATE [None]
  - DRUG ADMINISTRATION ERROR [None]
  - LUNG DISORDER [None]
  - PULMONARY OEDEMA [None]
